FAERS Safety Report 15642599 (Version 2)
Quarter: 2019Q1

REPORT INFORMATION
  Report Type: Spontaneous
  Country: JP (occurrence: JP)
  Receive Date: 20181121
  Receipt Date: 20190204
  Transmission Date: 20190417
  Serious: Yes (Other)
  Sender: FDA-Public Use
  Company Number: JP-009507513-1811JPN001620J

PATIENT
  Age: 65 Year
  Sex: Female
  Weight: 43.2 kg

DRUGS (3)
  1. GRAZYNA TABLETS 50MG [Suspect]
     Active Substance: GRAZOPREVIR
     Indication: CHRONIC HEPATITIS C
     Dosage: 100 MILLIGRAM, QD
     Route: 048
     Dates: start: 20180806, end: 20181001
  2. GRAZYNA TABLETS 50MG [Suspect]
     Active Substance: GRAZOPREVIR
     Dosage: 50 MILLIGRAM, QD
     Route: 048
     Dates: start: 20181010, end: 20181029
  3. ERELSA TABLETS 50MG [Suspect]
     Active Substance: ELBASVIR
     Indication: CHRONIC HEPATITIS C
     Dosage: 50 MILLIGRAM, QD
     Route: 048
     Dates: start: 20180806, end: 20181029

REACTIONS (1)
  - Drug-induced liver injury [Recovered/Resolved]

NARRATIVE: CASE EVENT DATE: 20180920
